FAERS Safety Report 9773193 (Version 1)
Quarter: 2013Q4

REPORT INFORMATION
  Report Type: Spontaneous
  Country: CA (occurrence: CA)
  Receive Date: 20131219
  Receipt Date: 20131219
  Transmission Date: 20140711
  Serious: Yes (Other)
  Sender: FDA-Public Use
  Company Number: CA-ASTRAZENECA-2013SE90477

PATIENT
  Age: 46 Year
  Sex: Female

DRUGS (2)
  1. BUDESONIDE [Suspect]
     Indication: ASTHMA
     Route: 055
  2. RITONAVIR [Interacting]
     Indication: HIV INFECTION
     Route: 065

REACTIONS (3)
  - Drug interaction [Unknown]
  - Cushing^s syndrome [Unknown]
  - Secondary adrenocortical insufficiency [Unknown]
